FAERS Safety Report 22925741 (Version 2)
Quarter: 2023Q4

REPORT INFORMATION
  Report Type: Spontaneous
  Country: US (occurrence: US)
  Receive Date: 20230908
  Receipt Date: 20231009
  Transmission Date: 20240110
  Serious: Yes (Other)
  Sender: FDA-Public Use
  Company Number: US-JAZZ PHARMACEUTICALS-2023-US-018722

PATIENT
  Sex: Male

DRUGS (1)
  1. RYLAZE [Suspect]
     Active Substance: ASPARAGINASE ERWINIA CHRYSANTHEMI (RECOMBINANT)-RYWN
     Indication: Hypersensitivity
     Dosage: 25 MILLIGRAM/SQ. METER, MWF
     Route: 030

REACTIONS (2)
  - Seizure [Recovered/Resolved]
  - Off label use [Unknown]
